FAERS Safety Report 9616682 (Version 2)
Quarter: 2013Q4

REPORT INFORMATION
  Report Type: Spontaneous
  Country: US (occurrence: US)
  Receive Date: 20131011
  Receipt Date: 20131011
  Transmission Date: 20140711
  Serious: No
  Sender: FDA-Public Use
  Company Number: US-BAXTER-2013BAX019356

PATIENT
  Age: 64 Year
  Sex: Male

DRUGS (3)
  1. DIANEAL LOW CALCIUM [Suspect]
     Indication: PERITONEAL DIALYSIS
     Route: 033
  2. EXTRANEAL [Suspect]
     Indication: PERITONEAL DIALYSIS
     Route: 033
  3. INSULIN [Concomitant]
     Indication: DIABETES MELLITUS

REACTIONS (3)
  - Drug administration error [Unknown]
  - Blood glucose increased [Not Recovered/Not Resolved]
  - Hypophagia [Unknown]
